FAERS Safety Report 7481569-X (Version None)
Quarter: 2011Q2

REPORT INFORMATION
  Report Type: 
  Country: None (occurrence: None)
  Receive Date: 20110516
  Receipt Date: 20110510
  Transmission Date: 20111010
  Serious: Yes (Death, Hospitalization)
  Sender: FDA-Public Use
  Company Number: US-ROCHE-657686

PATIENT
  Sex: Male
  Weight: 90.7 kg

DRUGS (23)
  1. ACTEMRA [Suspect]
     Dosage: ROUTE REPORTED:  IV INF, THERAPY TEMPORARILY INTERRUPTED
     Route: 042
     Dates: start: 20090825
  2. ASPIRIN [Concomitant]
     Dates: start: 20050101, end: 20101223
  3. DOXYCYCLIN [Concomitant]
     Indication: PROSTATE INFECTION
     Route: 048
     Dates: start: 20090723, end: 20090730
  4. METHOTREXATE [Concomitant]
  5. INSULIN [Concomitant]
     Dosage: DRUG NAME REPORTED: INSULIN 70/30, DOSING FREQUENCY: 35 UNITS IN AM AND 45 UNITS IN PM
     Dates: start: 20060101, end: 20101223
  6. FLOMAX [Concomitant]
  7. ACTEMRA [Suspect]
     Indication: RHEUMATOID ARTHRITIS
     Route: 042
     Dates: start: 20090602
  8. FOLIC ACID [Concomitant]
     Dates: start: 20060113, end: 20101223
  9. LISINOPRIL [Concomitant]
     Dates: start: 20090818, end: 20100823
  10. LISINOPRIL [Concomitant]
  11. FLOMAX [Concomitant]
     Dates: start: 20050101, end: 20101223
  12. ASPIRIN [Concomitant]
  13. ACTEMRA [Suspect]
     Route: 042
     Dates: start: 20090630
  14. ACTEMRA [Suspect]
     Route: 042
     Dates: start: 20090728
  15. METHOTREXATE [Concomitant]
     Dosage: TDD: 8 CC QS
     Dates: start: 20060101, end: 20090914
  16. CRESTOR [Concomitant]
     Indication: HYPERCHOLESTEROLAEMIA
     Dates: start: 20060101, end: 20101223
  17. CRESTOR [Concomitant]
  18. LISINOPRIL [Concomitant]
     Indication: HYPERTENSION
     Dates: start: 20080601, end: 20090818
  19. INSULIN [Concomitant]
     Dosage: INSULIN 70/80
  20. MELPHALAN HYDROCHLORIDE [Concomitant]
     Dates: start: 20061109, end: 20101223
  21. MELPHALAN HYDROCHLORIDE [Concomitant]
  22. ACTEMRA [Suspect]
     Dosage: THE LAST DOSE OF THE STUDY MEDICATION :25 AUGUST 2009.  THERAPY PERMANENTLY DISCONTINUED.
     Route: 042
     Dates: end: 20090921
  23. ACTEMRA [Suspect]
     Indication: RHEUMATOID ARTHRITIS
     Dosage: LATS RECEIVED DOSE: 10 FEB 2009
     Route: 042
     Dates: start: 20080729

REACTIONS (2)
  - ABDOMINAL ABSCESS [None]
  - COLON CANCER [None]
